FAERS Safety Report 6523161-7 (Version None)
Quarter: 2009Q4

REPORT INFORMATION
  Report Type: 
  Country: None (occurrence: None)
  Receive Date: 20091222
  Receipt Date: 20091211
  Transmission Date: 20100525
  Serious: Yes (Life-Threatening, Hospitalization)
  Sender: FDA-Public Use
  Company Number: ADR53752009

PATIENT
  Age: 50 Year
  Sex: Female

DRUGS (3)
  1. METFORMIN HCL [Suspect]
     Indication: INTENTIONAL OVERDOSE
     Dosage: 34 G -SINGLE DOSE ORAL
     Route: 048
  2. CARBIMAZOLE [Concomitant]
  3. OLANZAPINE [Concomitant]

REACTIONS (14)
  - AGITATION [None]
  - ANION GAP INCREASED [None]
  - CAPILLARY LEAK SYNDROME [None]
  - CARDIOVASCULAR INSUFFICIENCY [None]
  - DRUG TOXICITY [None]
  - HAEMODIALYSIS [None]
  - HYPOGLYCAEMIA [None]
  - INTENTIONAL OVERDOSE [None]
  - LACTIC ACIDOSIS [None]
  - METABOLIC ACIDOSIS [None]
  - RENAL FAILURE [None]
  - RESPIRATORY DISTRESS [None]
  - SUICIDAL IDEATION [None]
  - TACHYPNOEA [None]
